FAERS Safety Report 20799207 (Version 1)
Quarter: 2022Q2

REPORT INFORMATION
  Report Type: Report from Study
  Country: US (occurrence: US)
  Receive Date: 20220508
  Receipt Date: 20220508
  Transmission Date: 20220721
  Serious: Yes (Hospitalization, Other)
  Sender: FDA-Public Use
  Company Number: US-BRISTOL-MYERS SQUIBB COMPANY-2022-030219

PATIENT
  Age: 65 Year
  Sex: Male
  Weight: 115.6 kg

DRUGS (2)
  1. REVLIMID [Suspect]
     Active Substance: LENALIDOMIDE
     Indication: Plasma cell myeloma
     Dosage: FREQUENCY DAILY 21 OF 28 DAYS
     Route: 048
     Dates: start: 20210327
  2. REVLIMID [Suspect]
     Active Substance: LENALIDOMIDE
     Indication: Drug therapy

REACTIONS (1)
  - Arrhythmia [Unknown]
